FAERS Safety Report 11848125 (Version 2)
Quarter: 2016Q1

REPORT INFORMATION
  Report Type: Spontaneous
  Country: US (occurrence: US)
  Receive Date: 20151217
  Receipt Date: 20160115
  Transmission Date: 20160526
  Serious: Yes (Other)
  Sender: FDA-Public Use
  Company Number: US-PFIZER INC-2015438919

PATIENT
  Age: 76 Year

DRUGS (1)
  1. LIPITOR [Suspect]
     Active Substance: ATORVASTATIN CALCIUM
     Dosage: 1 DF, 3X/DAY
     Route: 048
     Dates: start: 20100325

REACTIONS (2)
  - Drug hypersensitivity [Unknown]
  - Hepatitis [Unknown]
